FAERS Safety Report 19073262 (Version 1)
Quarter: 2021Q1

REPORT INFORMATION
  Report Type: Report from Study
  Country: US (occurrence: US)
  Receive Date: 20210330
  Receipt Date: 20210330
  Transmission Date: 20210420
  Serious: Yes (Hospitalization)
  Sender: FDA-Public Use
  Company Number: US-JNJFOC-20210340880

PATIENT
  Age: 64 Year
  Sex: Female
  Weight: 63.6 kg

DRUGS (1)
  1. MACITENTAN [Suspect]
     Active Substance: MACITENTAN
     Indication: PULMONARY HYPERTENSION
     Route: 048

REACTIONS (4)
  - Oxygen saturation decreased [Unknown]
  - Blood pressure decreased [Unknown]
  - Hepatic cirrhosis [Unknown]
  - Blood urine present [Unknown]

NARRATIVE: CASE EVENT DATE: 20210308
